FAERS Safety Report 5621264-2 (Version None)
Quarter: 2008Q1

REPORT INFORMATION
  Report Type: 
  Country: None (occurrence: None)
  Receive Date: 20080211
  Receipt Date: 20080206
  Transmission Date: 20080703
  Serious: Yes (Hospitalization)
  Sender: FDA-Public Use
  Company Number: US-TEVA-167205USA

PATIENT
  Age: 62 Year
  Sex: Male

DRUGS (2)
  1. LIDOCAINE HYDROCHLORIDE 2% JELLY [Suspect]
     Indication: LOCAL ANAESTHESIA
  2. BENZOCAINE [Suspect]
     Indication: LOCAL ANAESTHESIA

REACTIONS (3)
  - DRUG TOXICITY [None]
  - METHAEMOGLOBINAEMIA [None]
  - POST PROCEDURAL COMPLICATION [None]
